FAERS Safety Report 16852892 (Version 1)
Quarter: 2019Q3

REPORT INFORMATION
  Report Type: Other
  Country: US (occurrence: US)
  Receive Date: 20190925
  Receipt Date: 20190925
  Transmission Date: 20191005
  Serious: Yes (Hospitalization)
  Sender: FDA-Public Use
  Company Number: US-B.BRAUN MEDICAL INC.-2074916

PATIENT
  Age: 70 Year
  Sex: Male

DRUGS (3)
  1. DEXTROSE. [Concomitant]
     Active Substance: DEXTROSE
  2. NEPHRAMINE [Suspect]
     Active Substance: CYSTEINE\CYSTEINE HYDROCHLORIDE\HISTIDINE\ISOLEUCINE\LEUCINE\LYSINE\LYSINE ACETATE\METHIONINE\PHENYLALANINE\SODIUM BISULFITE\THREONINE\TRYPTOPHAN\VALINE
     Indication: AZOTAEMIA
  3. FAT EMULSION NOS [Concomitant]
     Active Substance: EGG PHOSPHOLIPIDS\SAFFLOWER OIL\SOYBEAN OIL

REACTIONS (2)
  - Encephalopathy [None]
  - Hypophosphataemia [None]
